FAERS Safety Report 19176762 (Version 1)
Quarter: 2021Q2

REPORT INFORMATION
  Report Type: Report from Study
  Country: None (occurrence: IT)
  Receive Date: 20210424
  Receipt Date: 20210424
  Transmission Date: 20210717
  Serious: Yes (Hospitalization)
  Sender: FDA-Public Use
  Company Number: IT-ABBVIE-21K-083-3871818-00

PATIENT
  Age: 71 Year
  Sex: Male

DRUGS (2)
  1. DUODOPA [Suspect]
     Active Substance: CARBIDOPA\LEVODOPA
     Indication: PARKINSON^S DISEASE
     Dosage: PUMP SETTING: MD: 5+3; CR: 4,2 (15H); ED: 1
     Route: 050
     Dates: start: 20180327
  2. DUODOPA [Suspect]
     Active Substance: CARBIDOPA\LEVODOPA

REACTIONS (4)
  - Urinary tract infection [Unknown]
  - Colitis [Unknown]
  - Sepsis [Unknown]
  - Cognitive disorder [Unknown]

NARRATIVE: CASE EVENT DATE: 202104
